FAERS Safety Report 25317635 (Version 1)
Quarter: 2025Q2

REPORT INFORMATION
  Report Type: Spontaneous
  Country: GB (occurrence: GB)
  Receive Date: 20250515
  Receipt Date: 20250515
  Transmission Date: 20250717
  Serious: Yes (Other)
  Sender: ALKEM
  Company Number: GB-ALKEM LABORATORIES LIMITED-GB-ALKEM-2024-14345

PATIENT
  Age: 30 Year
  Sex: Male

DRUGS (6)
  1. AZATHIOPRINE [Suspect]
     Active Substance: AZATHIOPRINE
     Indication: Behcet^s syndrome
     Route: 065
  2. AZATHIOPRINE [Suspect]
     Active Substance: AZATHIOPRINE
     Indication: Intracranial pressure increased
  3. METHYLPREDNISOLONE [Suspect]
     Active Substance: METHYLPREDNISOLONE
     Indication: Behcet^s syndrome
     Route: 042
  4. METHYLPREDNISOLONE [Suspect]
     Active Substance: METHYLPREDNISOLONE
     Indication: Intracranial pressure increased
  5. PREDNISOLONE [Suspect]
     Active Substance: PREDNISOLONE
     Indication: Behcet^s syndrome
     Route: 065
  6. PREDNISOLONE [Suspect]
     Active Substance: PREDNISOLONE
     Indication: Intracranial pressure increased

REACTIONS (3)
  - Behcet^s syndrome [Unknown]
  - Intracranial pressure increased [Unknown]
  - Disease recurrence [Unknown]
